FAERS Safety Report 19143387 (Version 1)
Quarter: 2021Q2

REPORT INFORMATION
  Report Type: Spontaneous
  Country: IT (occurrence: IT)
  Receive Date: 20210416
  Receipt Date: 20210416
  Transmission Date: 20210717
  Serious: Yes (Other)
  Sender: FDA-Public Use
  Company Number: IT-AUROBINDO-AUR-APL-2021-014814

PATIENT
  Age: 6 Year
  Sex: Female

DRUGS (2)
  1. CETIRIZINE [Suspect]
     Active Substance: CETIRIZINE HYDROCHLORIDE
     Indication: COUGH
     Dosage: 5 MILLIGRAM, DAILY (IN THE EVENING)
     Route: 048
  2. CETIRIZINE [Suspect]
     Active Substance: CETIRIZINE HYDROCHLORIDE
     Indication: BRONCHOSPASM
     Dosage: 5 MILLIGRAM, DAILY (TWO MONTHS LATER)
     Route: 048

REACTIONS (1)
  - Enuresis [Recovered/Resolved]
